FAERS Safety Report 11038580 (Version 1)
Quarter: 2015Q2

REPORT INFORMATION
  Report Type: Spontaneous
  Country: US (occurrence: None)
  Receive Date: 20150415
  Receipt Date: 20150415
  Transmission Date: 20150821
  Serious: Yes (Other)
  Sender: FDA-Public Use
  Company Number: None

PATIENT
  Age: 56 Year
  Sex: Female
  Weight: 82.56 kg

DRUGS (4)
  1. SAFEDAY TUBING THAT INCLUDES POLYCARBONATE [Concomitant]
  2. TREANDA [Suspect]
     Active Substance: BENDAMUSTINE HYDROCHLORIDE
     Indication: B-CELL LYMPHOMA
     Dosage: D1 AND D2 EVERY 28
     Route: 042
     Dates: start: 20150211, end: 20150213
  3. TREANDA [Concomitant]
     Active Substance: BENDAMUSTINE HYDROCHLORIDE
  4. BBRAUN IV ADMIN SET [Concomitant]

REACTIONS (2)
  - Neutropenia [None]
  - White blood cell count decreased [None]

NARRATIVE: CASE EVENT DATE: 20150211
